FAERS Safety Report 25963407 (Version 1)
Quarter: 2025Q4

REPORT INFORMATION
  Report Type: Report from Study
  Country: US (occurrence: US)
  Receive Date: 20251027
  Receipt Date: 20251027
  Transmission Date: 20260117
  Serious: No
  Sender: MALLINCKRODT
  Company Number: US-MALLINCKRODT-MNK202506202

PATIENT
  Sex: Male

DRUGS (2)
  1. CORTICOTROPIN [Suspect]
     Active Substance: CORTICOTROPIN
     Indication: Noninfective chorioretinitis
     Dosage: UNKNOWN
  2. CORTICOTROPIN [Suspect]
     Active Substance: CORTICOTROPIN
     Dosage: 40 UNITS
     Dates: start: 2025

REACTIONS (5)
  - Dizziness [Unknown]
  - Blood pressure decreased [Unknown]
  - Productive cough [Recovering/Resolving]
  - Anxiety [Unknown]
  - Asthenia [Unknown]
